FAERS Safety Report 23789905 (Version 1)
Quarter: 2024Q2

REPORT INFORMATION
  Report Type: Spontaneous
  Country: CA (occurrence: CA)
  Receive Date: 20240426
  Receipt Date: 20240426
  Transmission Date: 20240716
  Serious: Yes (Other)
  Sender: FDA-Public Use
  Company Number: CA-FreseniusKabi-FK202406799

PATIENT
  Age: 44 Year
  Sex: Male

DRUGS (1)
  1. ADALIMUMAB [Suspect]
     Active Substance: ADALIMUMAB\ISOPROPYL ALCOHOL
     Indication: Product used for unknown indication
     Dosage: FORM: SOLUTION SUBCUTANEOUS?ROUTE: SUBCUTANEOUS

REACTIONS (6)
  - Ankylosing spondylitis [Unknown]
  - Arthralgia [Unknown]
  - Drug ineffective [Unknown]
  - Dysstasia [Unknown]
  - Intervertebral disc protrusion [Unknown]
  - Pain [Unknown]
